FAERS Safety Report 19444761 (Version 1)
Quarter: 2021Q2

REPORT INFORMATION
  Report Type: Spontaneous
  Country: CA (occurrence: CA)
  Receive Date: 20210621
  Receipt Date: 20210621
  Transmission Date: 20210717
  Serious: Yes (Disabling)
  Sender: FDA-Public Use
  Company Number: CA-MYLANLABS-2021M1036032

PATIENT
  Age: 70 Year
  Sex: Female

DRUGS (13)
  1. REACTINE                           /00884302/ [Concomitant]
     Active Substance: CETIRIZINE HYDROCHLORIDE
     Dosage: UNK
  2. DILTIAZEM                          /00489702/ [Concomitant]
     Active Substance: DILTIAZEM
     Dosage: UNK
  3. FASENRA [Concomitant]
     Active Substance: BENRALIZUMAB
     Dosage: PREFILLED SYRINGE
     Route: 058
  4. ACTONEL [Concomitant]
     Active Substance: RISEDRONATE SODIUM
     Dosage: UNK
  5. BACTERIOSTATIC WATER [Concomitant]
     Active Substance: WATER
     Dosage: UNK
  6. CALCIUM [Concomitant]
     Active Substance: CALCIUM
     Indication: PRODUCT USED FOR UNKNOWN INDICATION
     Dosage: UNK
  7. WIXELA INHUB [Suspect]
     Active Substance: FLUTICASONE PROPIONATE\SALMETEROL XINAFOATE
     Indication: EOSINOPHILIC GRANULOMATOSIS WITH POLYANGIITIS
     Dosage: 1 DOSAGE FORM, 2 EVERY 1 DAYS
  8. PREDNISONE. [Concomitant]
     Active Substance: PREDNISONE
     Dosage: UNK
  9. CHOLECALCIFEROL [Concomitant]
     Active Substance: CHOLECALCIFEROL
     Dosage: UNK
  10. RAN?RABEPRAZOLE [Concomitant]
     Dosage: UNK
  11. VENTOLIN [Concomitant]
     Active Substance: ALBUTEROL SULFATE
     Dosage: UNK
  12. OMNARIS [Concomitant]
     Active Substance: CICLESONIDE
     Dosage: UNK
  13. PROTOPIC [Concomitant]
     Active Substance: TACROLIMUS
     Dosage: UNK
     Route: 061

REACTIONS (2)
  - Headache [Recovered/Resolved]
  - Off label use [Unknown]
